FAERS Safety Report 19275067 (Version 1)
Quarter: 2021Q2

REPORT INFORMATION
  Report Type: Spontaneous
  Country: US (occurrence: US)
  Receive Date: 20210519
  Receipt Date: 20210519
  Transmission Date: 20210717
  Serious: No
  Sender: FDA-Public Use
  Company Number: US-TEVA-2021-US-1909117

PATIENT
  Age: 57 Year
  Sex: Female

DRUGS (3)
  1. PROAIR HFA [Suspect]
     Active Substance: ALBUTEROL SULFATE
     Dosage: EVERY 2 PUFFS EVERY 4?6 HOURS
     Route: 055
     Dates: start: 20210503
  2. GABAPENTIN. [Concomitant]
     Active Substance: GABAPENTIN
  3. LISINOPRIL. [Concomitant]
     Active Substance: LISINOPRIL

REACTIONS (3)
  - Product storage error [Unknown]
  - Chest discomfort [Unknown]
  - Product administration error [Unknown]

NARRATIVE: CASE EVENT DATE: 20210503
